FAERS Safety Report 15072781 (Version 1)
Quarter: 2018Q2

REPORT INFORMATION
  Report Type: Report from Study
  Country: None (occurrence: US)
  Receive Date: 20180627
  Receipt Date: 20180627
  Transmission Date: 20180711
  Serious: Yes (Other)
  Sender: FDA-Public Use
  Company Number: US-ABBVIE-18K-163-2354783-00

PATIENT
  Age: 25 Year
  Sex: Female

DRUGS (2)
  1. HUMIRA [Suspect]
     Active Substance: ADALIMUMAB
     Indication: EXPOSURE VIA BODY FLUID
     Route: 050
  2. PITOCIN [Suspect]
     Active Substance: OXYTOCIN
     Indication: FAILED INDUCTION OF LABOUR
     Route: 065
     Dates: end: 2015

REACTIONS (5)
  - Exposure during pregnancy [Unknown]
  - Failed induction of labour [Unknown]
  - Live birth [Unknown]
  - Swelling [Recovered/Resolved]
  - Paternal drugs affecting foetus [Unknown]

NARRATIVE: CASE EVENT DATE: 201502
